FAERS Safety Report 11513540 (Version 1)
Quarter: 2015Q3

REPORT INFORMATION
  Report Type: Spontaneous
  Country: BR (occurrence: BR)
  Receive Date: 20150916
  Receipt Date: 20150916
  Transmission Date: 20151125
  Serious: Yes (Hospitalization)
  Sender: FDA-Public Use
  Company Number: BR-PFIZER INC-2015293126

PATIENT
  Sex: Male

DRUGS (4)
  1. FRONTAL [Suspect]
     Active Substance: ALPRAZOLAM
     Indication: DEPRESSION
  2. TRAMAL [Suspect]
     Active Substance: TRAMADOL
     Indication: INTERVERTEBRAL DISC PROTRUSION
     Dosage: 2 ^TABLETS^, 3X/DAY
     Dates: end: 20150820
  3. FRONTAL [Suspect]
     Active Substance: ALPRAZOLAM
     Indication: INSOMNIA
     Dosage: 1 MG, 1X/DAY (AT NIGHT)
     Dates: end: 20150820
  4. LYRICA [Suspect]
     Active Substance: PREGABALIN
     Indication: INTERVERTEBRAL DISC PROTRUSION
     Dosage: ONE UNIT, 1X/DAY (AT NIGHT)
     Dates: start: 2010

REACTIONS (2)
  - Condition aggravated [Recovered/Resolved]
  - Intervertebral disc protrusion [Recovered/Resolved]
